FAERS Safety Report 6484459-4 (Version None)
Quarter: 2009Q4

REPORT INFORMATION
  Report Type: 
  Country: None (occurrence: None)
  Receive Date: 20091209
  Receipt Date: 20091130
  Transmission Date: 20100525
  Serious: Yes (Hospitalization, Other)
  Sender: FDA-Public Use
  Company Number: PHHY2009AR52723

PATIENT
  Sex: Female

DRUGS (3)
  1. RASILEZ [Suspect]
     Indication: HYPERTENSION
     Dosage: 300 MG, 1 TABLET DAILY
     Dates: start: 20091001, end: 20091111
  2. DILATREND [Concomitant]
     Dosage: UNK
  3. LOSARTAN POTASSIUM AND HYDROCHLOROTHIAZIDE [Concomitant]
     Dosage: UNK

REACTIONS (3)
  - BLOOD PRESSURE INCREASED [None]
  - VERTIGO [None]
  - VOMITING [None]
